FAERS Safety Report 13849674 (Version 1)
Quarter: 2017Q3

REPORT INFORMATION
  Report Type: Spontaneous
  Country: JP (occurrence: JP)
  Receive Date: 20170809
  Receipt Date: 20170809
  Transmission Date: 20171127
  Serious: No
  Sender: FDA-Public Use
  Company Number: JP-LUPIN PHARMACEUTICALS INC.-2017-00926

PATIENT
  Age: 3 Year
  Sex: Female

DRUGS (6)
  1. LEVETIRACETAM. [Suspect]
     Active Substance: LEVETIRACETAM
     Indication: SEVERE MYOCLONIC EPILEPSY OF INFANCY
     Dosage: UNK
     Route: 065
  2. VALPROATE [Suspect]
     Active Substance: VALPROIC ACID
     Dosage: 28.91 UNK, QD
     Route: 065
  3. STIRIPENTOL [Concomitant]
     Active Substance: STIRIPENTOL
     Indication: SEVERE MYOCLONIC EPILEPSY OF INFANCY
     Dosage: 34.01 MG/KG, QD
     Route: 065
  4. CLOBAZAM [Suspect]
     Active Substance: CLOBAZAM
     Indication: SEVERE MYOCLONIC EPILEPSY OF INFANCY
     Dosage: 0.17 UNK, QD
     Route: 065
  5. POTASSIUM BROMIDE [Suspect]
     Active Substance: POTASSIUM BROMIDE
     Indication: SEVERE MYOCLONIC EPILEPSY OF INFANCY
     Dosage: UNK
     Route: 065
  6. VALPROATE [Suspect]
     Active Substance: VALPROIC ACID
     Indication: SEVERE MYOCLONIC EPILEPSY OF INFANCY
     Dosage: 34.01 MG/KG, QD
     Route: 065

REACTIONS (4)
  - Decreased appetite [Recovered/Resolved]
  - Drug level increased [Unknown]
  - Hyperkinesia [Unknown]
  - Drug interaction [Unknown]
